FAERS Safety Report 8393615-X (Version None)
Quarter: 2012Q2

REPORT INFORMATION
  Report Type: 
  Country: None (occurrence: None)
  Receive Date: 20120530
  Receipt Date: 20120521
  Transmission Date: 20120825
  Serious: Yes (Hospitalization)
  Sender: FDA-Public Use
  Company Number: FR-BIOGENIDEC-2012BI002800

PATIENT
  Age: 42 Year
  Sex: Female

DRUGS (7)
  1. TYSABRI [Suspect]
     Route: 042
     Dates: start: 20080625
  2. TYSABRI [Suspect]
     Indication: MULTIPLE SCLEROSIS
     Route: 042
     Dates: start: 20071025, end: 20080506
  3. EDUCTYL [Concomitant]
  4. TROSPIUM CHLORIDE [Concomitant]
     Indication: URINARY INCONTINENCE
     Route: 048
  5. SPAGULAX [Concomitant]
  6. VALPROIC ACID [Concomitant]
  7. CITALOPRAM HYDROBROMIDE [Concomitant]

REACTIONS (1)
  - BENIGN NEOPLASM OF BLADDER [None]
